FAERS Safety Report 12934365 (Version 1)
Quarter: 2016Q4

REPORT INFORMATION
  Report Type: Spontaneous
  Country: US (occurrence: US)
  Receive Date: 20161111
  Receipt Date: 20161111
  Transmission Date: 20170207
  Serious: No
  Sender: FDA-Public Use
  Company Number: US-GREER LABORATORIES, INC.-1059464

PATIENT
  Age: 15 Year
  Sex: Female
  Weight: 45.46 kg

DRUGS (3)
  1. FOOD - PLANT SOURCE, PECAN CARYA ILLINOENSIS [Suspect]
     Active Substance: PECAN
     Indication: MULTIPLE ALLERGIES
     Route: 023
  2. FOOD - PLANT SOURCE, WALNUT, ENGLISH, JUGLANS REGIA [Suspect]
     Active Substance: ENGLISH WALNUT
     Route: 023
  3. FOOD - PLANT SOURCE, PEANUT ARACHIS HYPOGAEA [Suspect]
     Active Substance: PEANUT
     Route: 023

REACTIONS (1)
  - Drug ineffective [Unknown]

NARRATIVE: CASE EVENT DATE: 20160829
